FAERS Safety Report 12567140 (Version 1)
Quarter: 2016Q3

REPORT INFORMATION
  Report Type: Spontaneous
  Country: BR (occurrence: BR)
  Receive Date: 20160718
  Receipt Date: 20160718
  Transmission Date: 20161109
  Serious: Yes (Other)
  Sender: FDA-Public Use
  Company Number: BR-SA-2016SA128599

PATIENT
  Age: 47 Year
  Sex: Male
  Weight: 63 kg

DRUGS (6)
  1. LANTUS [Suspect]
     Active Substance: INSULIN GLARGINE
     Indication: DIABETES MELLITUS
     Dosage: DOSE: 20 IU DURING DAY AND 2 IU AT NIGHT
     Route: 023
  2. LANTUS [Suspect]
     Active Substance: INSULIN GLARGINE
     Indication: DIABETES MELLITUS
     Dosage: DOSE: 20 IU DURING DAY AND 2 IU AT NIGHT
     Route: 023
     Dates: start: 201606
  3. LANTUS [Suspect]
     Active Substance: INSULIN GLARGINE
     Indication: DIABETES MELLITUS
     Dosage: DOSE: 20 IU DURING DAY AND 2 IU AT NIGHT
     Route: 023
  4. LANTUS [Suspect]
     Active Substance: INSULIN GLARGINE
     Indication: DIABETES MELLITUS
     Route: 023
     Dates: start: 2006
  5. CODEINE [Concomitant]
     Active Substance: CODEINE
     Indication: PAIN
     Route: 048
     Dates: start: 20160518
  6. HUMALOG [Concomitant]
     Active Substance: INSULIN LISPRO
     Indication: HYPERGLYCAEMIA
     Route: 023

REACTIONS (9)
  - Syncope [Recovering/Resolving]
  - Hypoglycaemia [Recovering/Resolving]
  - Product use issue [Unknown]
  - Drug ineffective [Unknown]
  - Seizure [Recovering/Resolving]
  - Head injury [Recovering/Resolving]
  - Fall [Unknown]
  - Hyperglycaemia [Unknown]
  - Off label use [Unknown]

NARRATIVE: CASE EVENT DATE: 20160518
